FAERS Safety Report 9656037 (Version 2)
Quarter: 2013Q2

REPORT INFORMATION
  Report Type: Spontaneous
  Country: GB (occurrence: None)
  Receive Date: 20130425
  Receipt Date: 20130618
  Transmission Date: 20140414
  Serious: No
  Sender: FDA-Public Use
  Company Number: 221195

PATIENT
  Sex: Male

DRUGS (4)
  1. DAIVOBET [Suspect]
     Indication: PSORIASIS
     Route: 061
     Dates: start: 20070609
  2. SIMVASTATIN (SIMVASTATIN) [Concomitant]
  3. ASPIRIN (ACETYLSALICYLIC ACID) [Concomitant]
  4. PAINKILLERS (ANALGESICS) [Concomitant]

REACTIONS (2)
  - Circulatory collapse [None]
  - Aortic rupture [None]
